FAERS Safety Report 24913042 (Version 2)
Quarter: 2025Q1

REPORT INFORMATION
  Report Type: Report from Study
  Country: US (occurrence: US)
  Receive Date: 20250201
  Receipt Date: 20250210
  Transmission Date: 20250409
  Serious: Yes (Death, Hospitalization, Other)
  Sender: GILEAD
  Company Number: US-GILEAD-2025-0701931

PATIENT
  Age: 44 Year
  Sex: Male

DRUGS (4)
  1. AZTREONAM LYSINE [Suspect]
     Active Substance: AZTREONAM LYSINE
     Indication: Cystic fibrosis
     Dosage: 75 MG, TID THREE TIMES DAILY FOR 28 DAYS ON, 28 DAYS OFF
     Route: 055
     Dates: start: 202003
  2. TRIKAFTA [Suspect]
     Active Substance: ELEXACAFTOR\IVACAFTOR\TEZACAFTOR
     Indication: Cystic fibrosis
     Dosage: 3 DOSAGE FORM, BID ( 2 ORANGE TABLETS BY MOUTH IN THE MORNING AND 1 LIGHT BLUE TABLET IN THE EVENING
     Route: 048
     Dates: start: 202411
  3. TOBRAMYCIN [Concomitant]
     Active Substance: TOBRAMYCIN
  4. PULMOZYME [Concomitant]
     Active Substance: DORNASE ALFA

REACTIONS (2)
  - Death [Fatal]
  - Endotracheal intubation [Not Recovered/Not Resolved]

NARRATIVE: CASE EVENT DATE: 20250206
